FAERS Safety Report 4848730-1 (Version None)
Quarter: 2005Q4

REPORT INFORMATION
  Report Type: 
  Country: None (occurrence: None)
  Receive Date: 20051208
  Receipt Date: 20041227
  Transmission Date: 20060501
  Serious: Yes (Hospitalization)
  Sender: FDA-Public Use
  Company Number: AR-BRISTOL-MYERS SQUIBB COMPANY-12806394

PATIENT
  Age: 61 Year
  Sex: Female

DRUGS (4)
  1. IXABEPILONE [Suspect]
     Indication: BREAST CANCER
     Route: 042
     Dates: start: 20041216, end: 20041216
  2. CAPECITABINE [Suspect]
     Indication: BREAST CANCER
     Route: 048
     Dates: start: 20041216, end: 20041227
  3. MORPHINE SULFATE [Concomitant]
  4. METOCLOPRAMIDE [Concomitant]
     Dates: start: 20041101

REACTIONS (5)
  - HYPOKALAEMIA [None]
  - NEUTROPENIA [None]
  - PLATELET COUNT DECREASED [None]
  - PNEUMONIA [None]
  - PYREXIA [None]
